FAERS Safety Report 7115244-8 (Version None)
Quarter: 2010Q4

REPORT INFORMATION
  Report Type: 
  Country: None (occurrence: None)
  Receive Date: 20101122
  Receipt Date: 20100319
  Transmission Date: 20110411
  Serious: No
  Sender: FDA-Public Use
  Company Number: A0851169A

PATIENT
  Age: 63 Year
  Sex: Male

DRUGS (7)
  1. EVOCLIN [Suspect]
     Indication: GENITAL RASH
     Dosage: 1APP SINGLE DOSE
     Route: 061
     Dates: start: 20100319
  2. DIGOXIN [Concomitant]
  3. PRAVASTATIN [Concomitant]
  4. WARFARIN [Concomitant]
  5. LISINOPRIL [Concomitant]
  6. SPIRONOLACTONE [Concomitant]
  7. STEROID SHOT [Concomitant]

REACTIONS (1)
  - APPLICATION SITE PAIN [None]
